FAERS Safety Report 5594979-2 (Version None)
Quarter: 2008Q1

REPORT INFORMATION
  Report Type: 
  Country: None (occurrence: None)
  Receive Date: 20080117
  Receipt Date: 20080110
  Transmission Date: 20080703
  Serious: Yes (Other)
  Sender: FDA-Public Use
  Company Number: FR-ABBOTT-07P-056-0362794-00

PATIENT
  Sex: Female

DRUGS (3)
  1. SEVORANE LIQUID FOR INHALATION [Suspect]
     Indication: ANAESTHESIA
     Route: 055
     Dates: start: 20070207
  2. SEVORANE LIQUID FOR INHALATION [Suspect]
     Indication: EYE OPERATION
  3. CURARE [Concomitant]
     Indication: ANAESTHESIA

REACTIONS (5)
  - ANAESTHETIC COMPLICATION [None]
  - DEVICE MALFUNCTION [None]
  - DRUG INEFFECTIVE [None]
  - PAIN [None]
  - UNWANTED AWARENESS DURING ANAESTHESIA [None]
